FAERS Safety Report 4708829-7 (Version None)
Quarter: 2005Q3

REPORT INFORMATION
  Report Type: 
  Country: None (occurrence: None)
  Receive Date: 20050705
  Receipt Date: 20050617
  Transmission Date: 20060218
  Serious: Yes (Disabling)
  Sender: FDA-Public Use
  Company Number: A044-002-005459

PATIENT
  Sex: Female

DRUGS (6)
  1. ARICEPT [Suspect]
     Indication: DEMENTIA ALZHEIMER'S TYPE
     Dosage: 10 MG, 1 IN 1 D, ORAL
     Route: 048
     Dates: start: 20020101
  2. THYROXIN (LEVOTHYROXINE SODIUM) [Concomitant]
  3. LANSOPRAZOLE [Concomitant]
  4. NITROFURANTOIN [Concomitant]
  5. METOCLOPRAMIDE [Concomitant]
  6. ACETAMINOPHEN [Concomitant]

REACTIONS (1)
  - DYSKINESIA [None]
